FAERS Safety Report 12315644 (Version 1)
Quarter: 2016Q2

REPORT INFORMATION
  Report Type: Spontaneous
  Country: GB (occurrence: GB)
  Receive Date: 20160428
  Receipt Date: 20160428
  Transmission Date: 20160815
  Serious: Yes (Hospitalization)
  Sender: FDA-Public Use
  Company Number: GB-TEVA-654148ACC

PATIENT
  Age: 68 Year
  Sex: Female
  Weight: 67 kg

DRUGS (17)
  1. CODEINE PHOSPHATE [Concomitant]
     Active Substance: CODEINE PHOSPHATE
     Dosage: 4 DOSAGE FORMS DAILY;
     Dates: start: 20160113, end: 20160116
  2. LAMOTRIGINE. [Concomitant]
     Active Substance: LAMOTRIGINE
     Dosage: 1 DOSAGE FORMS DAILY;
     Dates: start: 20150304
  3. PRIADEL [Concomitant]
     Active Substance: LITHIUM CARBONATE
     Dosage: 2 DOSAGE FORMS DAILY; EACH NIGHT; DAILY DOSE: 2DOSAGE FORMS
     Dates: start: 20150304
  4. MORPHINE SULFATE. [Concomitant]
     Active Substance: MORPHINE SULFATE
     Dosage: 4-6 HOURLY
     Dates: start: 20160118, end: 20160120
  5. MST CONTINUS [Concomitant]
     Active Substance: MORPHINE SULFATE
     Dates: start: 20160118, end: 20160217
  6. NITRAZEPAM [Concomitant]
     Active Substance: NITRAZEPAM
     Dosage: .5 DOSAGE FORMS DAILY; AT NIGHT; DAILY DOSE: 0.5 DOSAGE FORMS
     Dates: start: 20150304
  7. PROCYCLIDINE [Concomitant]
     Active Substance: PROCYCLIDINE
     Dosage: 2 DOSAGE FORMS DAILY;
     Dates: start: 20150304
  8. METOCLOPRAMIDE. [Suspect]
     Active Substance: METOCLOPRAMIDE
     Dates: start: 20160412
  9. STELAZINE [Concomitant]
     Active Substance: TRIFLUOPERAZINE HYDROCHLORIDE
     Dosage: 6 DOSAGE FORMS DAILY;
     Dates: start: 20150304
  10. COSMOCOL [Concomitant]
     Dosage: 1 DOSAGE FORMS DAILY;
     Dates: start: 20150820
  11. FUROSEMIDE. [Concomitant]
     Active Substance: FUROSEMIDE
     Indication: HYPERTENSION
     Dosage: 1 DOSAGE FORMS DAILY; EACH MORNING; DAILY DOSE: 1DOSAGE FORMS
     Dates: start: 20150820
  12. LEVOTHYROXINE. [Concomitant]
     Active Substance: LEVOTHYROXINE
     Dosage: 1 DOSAGE FORMS DAILY; EACH MORNING; DAILY DOSE: 1DOSAGE FORMS
     Dates: start: 20150304
  13. TRIFLUOPERAZINE [Concomitant]
     Active Substance: TRIFLUOPERAZINE\TRIFLUOPERAZINE HYDROCHLORIDE
     Dosage: USE AS DIRECTED
     Dates: start: 20150304
  14. ZAPAIN [Concomitant]
     Active Substance: ACETAMINOPHEN\CODEINE PHOSPHATE
     Dosage: TAKE 1 OR 2 4 TIMES/DAY
     Dates: start: 20150304
  15. ALENDRONIC ACID [Concomitant]
     Active Substance: ALENDRONIC ACID
     Dates: start: 20150304
  16. BISOPROLOL [Concomitant]
     Active Substance: BISOPROLOL
     Dosage: 1 DOSAGE FORMS DAILY;
     Dates: start: 20150820
  17. SIMVASTATIN. [Concomitant]
     Active Substance: SIMVASTATIN
     Dosage: 1 DOSAGE FORMS DAILY; AT NIGHT; DAILY DOSE: 1DOSAGE FORMS
     Dates: start: 20150304

REACTIONS (2)
  - Vomiting [Recovered/Resolved]
  - Malaise [Recovered/Resolved]

NARRATIVE: CASE EVENT DATE: 20160412
